FAERS Safety Report 12238229 (Version 1)
Quarter: 2016Q2

REPORT INFORMATION
  Report Type: Spontaneous
  Country: US (occurrence: US)
  Receive Date: 20160405
  Receipt Date: 20160405
  Transmission Date: 20160815
  Serious: Yes (Life-Threatening, Hospitalization)
  Sender: FDA-Public Use
  Company Number: US-PFIZER INC-2016186873

PATIENT
  Age: 64 Year
  Sex: Female
  Weight: 48 kg

DRUGS (1)
  1. PREMARIN [Suspect]
     Active Substance: ESTROGENS, CONJUGATED
     Indication: OESTROGEN REPLACEMENT THERAPY
     Dosage: 0.03 -THE LOW DOSE, ONCE A DAY
     Route: 048
     Dates: start: 1999

REACTIONS (6)
  - Chest pain [Recovered/Resolved with Sequelae]
  - Activities of daily living impaired [Unknown]
  - Amnesia [Unknown]
  - Gait disturbance [Unknown]
  - Mitral valve disease [Recovered/Resolved]
  - Dyspnoea [Recovered/Resolved with Sequelae]
